FAERS Safety Report 7055619-9 (Version None)
Quarter: 2010Q4

REPORT INFORMATION
  Report Type: 
  Country: None (occurrence: None)
  Receive Date: 20101021
  Receipt Date: 20101020
  Transmission Date: 20110411
  Serious: Yes (Hospitalization, Other)
  Sender: FDA-Public Use
  Company Number: AR-BRISTOL-MYERS SQUIBB COMPANY-14890396

PATIENT
  Age: 52 Year
  Sex: Female

DRUGS (3)
  1. ABATACEPT [Suspect]
     Indication: RHEUMATOID ARTHRITIS
     Dosage: INTERRUPTED ON 09DEC09, RESTARTED ON 15SEP2010
     Route: 058
     Dates: start: 20080730
  2. METHOTREXATE [Suspect]
     Indication: RHEUMATOID ARTHRITIS
     Dates: start: 20080325
  3. FOLIC ACID [Concomitant]
     Dates: start: 20080325

REACTIONS (1)
  - FIBROADENOMA OF BREAST [None]
